FAERS Safety Report 25459120 (Version 1)
Quarter: 2025Q2

REPORT INFORMATION
  Report Type: Report from Study
  Country: US (occurrence: US)
  Receive Date: 20250620
  Receipt Date: 20250620
  Transmission Date: 20250716
  Serious: No
  Sender: SYNDAX
  Company Number: US-SYNDAX PHARMACEUTICALS, INC.-2025US000492

PATIENT
  Age: 55 Year
  Sex: Male

DRUGS (2)
  1. REVUFORJ [Suspect]
     Active Substance: REVUMENIB CITRATE
     Indication: Acute myeloid leukaemia
     Dosage: 270 MG BID TOTAL
     Route: 048
     Dates: start: 202506
  2. REVUFORJ [Suspect]
     Active Substance: REVUMENIB CITRATE
     Dosage: 270 MG BID TOTAL
     Route: 048
     Dates: start: 202506

REACTIONS (1)
  - Off label use [Unknown]

NARRATIVE: CASE EVENT DATE: 20250601
